FAERS Safety Report 6124259-8 (Version None)
Quarter: 2009Q1

REPORT INFORMATION
  Report Type: 
  Country: None (occurrence: None)
  Receive Date: 20090319
  Receipt Date: 20090317
  Transmission Date: 20090719
  Serious: Yes (Hospitalization)
  Sender: FDA-Public Use
  Company Number: US-ABBOTT-09P-163-0562970-00

PATIENT
  Sex: Female
  Weight: 79.45 kg

DRUGS (3)
  1. HUMIRA [Suspect]
     Indication: PSORIATIC ARTHROPATHY
     Route: 058
     Dates: start: 20080901, end: 20081210
  2. HUMIRA [Suspect]
     Indication: PSORIASIS
  3. CYMBALTA [Concomitant]
     Indication: DEPRESSION

REACTIONS (2)
  - BACK DISORDER [None]
  - RENAL CELL CARCINOMA [None]
